FAERS Safety Report 4723391-0 (Version None)
Quarter: 2005Q3

REPORT INFORMATION
  Report Type: 
  Country: None (occurrence: None)
  Receive Date: 20050725
  Receipt Date: 20050720
  Transmission Date: 20060218
  Serious: Yes (Hospitalization)
  Sender: FDA-Public Use
  Company Number: PHBS2005JP10417

PATIENT
  Age: 59 Year
  Sex: Male
  Weight: 65 kg

DRUGS (5)
  1. APRESOLINE [Suspect]
     Indication: RENAL HYPERTENSION
     Route: 065
  2. PROPRANOLOL HYDROCHLORIDE [Concomitant]
     Route: 065
  3. DELAPRIL HYDROCHLORIDE [Concomitant]
     Route: 065
  4. NIFEDIPINE [Concomitant]
     Route: 065
  5. ASPIRIN [Concomitant]
     Route: 065

REACTIONS (4)
  - CEREBRAL INFARCTION [None]
  - DYSARTHRIA [None]
  - HEMIPARESIS [None]
  - NEUROGENIC BLADDER [None]
